FAERS Safety Report 9280879 (Version 3)
Quarter: 2014Q2

REPORT INFORMATION
  Report Type: Report from Study
  Country: CZ (occurrence: CZ)
  Receive Date: 20130509
  Receipt Date: 20140502
  Transmission Date: 20141212
  Serious: Yes (Hospitalization, Other)
  Sender: FDA-Public Use
  Company Number: CZ-BRISTOL-MYERS SQUIBB COMPANY-18766741

PATIENT
  Age: 73 Year
  Sex: Female
  Weight: 68 kg

DRUGS (19)
  1. CARBOPLATIN [Suspect]
     Indication: NON-SMALL CELL LUNG CANCER
     Dosage: 1 DF:6 AUC ON D3 OF 21 D CYCLE.
     Route: 042
     Dates: start: 20130131
  2. PACLITAXEL [Suspect]
     Indication: NON-SMALL CELL LUNG CANCER
     Dosage: D3 OF 21D CYCLE:31JAN-31JAN13:200MG?175MG:21FEB13-DELAYED
     Route: 042
     Dates: start: 20130131
  3. KLACID [Concomitant]
     Indication: C-REACTIVE PROTEIN INCREASED
     Dates: start: 20130124
  4. SERETIDE [Concomitant]
     Dates: start: 201204
  5. CODEINE PHOSPHATE [Concomitant]
     Indication: COUGH
     Dates: start: 20130123
  6. HELICID [Concomitant]
     Indication: GASTRODUODENAL ULCER
     Dates: start: 201204
  7. PROPANORM [Concomitant]
     Indication: HYPERTENSION
     Dates: start: 200805
  8. TRIASYN [Concomitant]
     Indication: HYPERTENSION
     Dates: start: 200707
  9. LACTULOSE [Concomitant]
     Indication: PROPHYLAXIS
     Dosage: 1 DF: 1SPOON(AS REQUIRED)
     Dates: start: 20130116
  10. CLEXANE [Concomitant]
     Indication: THROMBOSIS
     Dates: start: 201209
  11. MEGACE [Concomitant]
     Indication: DECREASED APPETITE
     Dates: start: 20130214, end: 20130306
  12. KALIUM [Concomitant]
     Indication: HYPOKALAEMIA
     Dates: start: 20130129, end: 20130306
  13. DEXAMETHASONE [Concomitant]
     Indication: PREMEDICATION
     Dates: start: 20130131, end: 20130221
  14. DEXAMETHASONE [Concomitant]
     Indication: ANTIEMETIC SUPPORTIVE CARE
     Dates: start: 20130131, end: 20130221
  15. DITHIADEN [Concomitant]
     Indication: PROPHYLAXIS
     Dates: start: 20130131, end: 20130221
  16. DITHIADEN [Concomitant]
     Indication: PREMEDICATION
     Dates: start: 20130131, end: 20130221
  17. RANITIDINE [Concomitant]
     Indication: GASTRIC DISORDER
     Dates: start: 20130131, end: 20130221
  18. RANITIDINE [Concomitant]
     Indication: PREMEDICATION
     Dates: start: 20130131, end: 20130221
  19. RANITIDINE [Concomitant]
     Indication: PROPHYLAXIS
     Dates: start: 20130131, end: 20130221

REACTIONS (2)
  - Enterocolitis [Recovered/Resolved]
  - Renal failure acute [Unknown]
